FAERS Safety Report 19721869 (Version 1)
Quarter: 2021Q3

REPORT INFORMATION
  Report Type: Spontaneous
  Country: CH (occurrence: CH)
  Receive Date: 20210819
  Receipt Date: 20210819
  Transmission Date: 20211014
  Serious: Yes (Other)
  Sender: FDA-Public Use
  Company Number: CH-AMGEN-CHESP2021123894

PATIENT
  Age: 86 Year
  Sex: Female
  Weight: 54 kg

DRUGS (14)
  1. PROLIA [Suspect]
     Active Substance: DENOSUMAB
     Dosage: 60 MILLIGRAM, CYCLICAL (60 MG 1 X EVERY SIX MONTHS (MAY/2015 TO MAY/2018 ?NOV/2019 ?APR/2020 ?MAY/20
     Route: 058
     Dates: start: 201911
  2. FOSAMAX [Concomitant]
     Active Substance: ALENDRONATE SODIUM
     Dosage: 70 MILLIGRAM, QWK
     Dates: start: 201901, end: 201907
  3. ELIQUIS [Concomitant]
     Active Substance: APIXABAN
     Dosage: 2.5 MILLIGRAM, BID
  4. ZOLPIDEM [Concomitant]
     Active Substance: ZOLPIDEM TARTRATE
     Dosage: 10 MILLIGRAM, QD
  5. CO?DAFALGAN [Concomitant]
     Active Substance: ACETAMINOPHEN\CODEINE PHOSPHATE
     Dosage: TID (500/30 MAX 3X / D)
  6. PARACETAMOL [Concomitant]
     Active Substance: ACETAMINOPHEN
     Dosage: 500 MILLIGRAM, BID
  7. ELTROXIN [Concomitant]
     Active Substance: LEVOTHYROXINE
     Dosage: 0.05 MILLIGRAM, QD
  8. FOSAMAX [Concomitant]
     Active Substance: ALENDRONATE SODIUM
     Dosage: 70 MILLIGRAM, QWK (70 MG 1X / WK. PER BETWEEN 2001 AND 2005)
     Dates: start: 2001, end: 2005
  9. PROLIA [Suspect]
     Active Substance: DENOSUMAB
     Indication: OSTEOPOROSIS
     Dosage: 60 MILLIGRAM, CYCLICAL (60 MG 1 X EVERY SIX MONTHS (MAY/2015 TO MAY/2018 ?NOV/2019 ?APR/2020 ?MAY/20
     Route: 058
     Dates: start: 201505, end: 201805
  10. ACLASTA [Concomitant]
     Active Substance: ZOLEDRONIC ACID
  11. DEMETRIN [Concomitant]
     Active Substance: PRAZEPAM
     Dosage: 10 MILLIGRAM
  12. CANDESARTAN. [Concomitant]
     Active Substance: CANDESARTAN
     Dosage: 16 MILLIGRAM, QD
  13. CALCIMAGON D3 [Concomitant]
     Active Substance: CALCIUM\CHOLECALCIFEROL
     Dosage: 1000/800 IU 1X / D
  14. METOPROLOL. [Concomitant]
     Active Substance: METOPROLOL
     Dosage: 12.5 MILLIGRAM, QD

REACTIONS (2)
  - Thoracic vertebral fracture [Not Recovered/Not Resolved]
  - Thoracic vertebral fracture [Not Recovered/Not Resolved]

NARRATIVE: CASE EVENT DATE: 20190930
